FAERS Safety Report 4629383-4 (Version None)
Quarter: 2005Q2

REPORT INFORMATION
  Report Type: 
  Country: None (occurrence: None)
  Receive Date: 20050405
  Receipt Date: 20050303
  Transmission Date: 20051028
  Serious: Yes (Death, Life-Threatening, Hospitalization)
  Sender: FDA-Public Use
  Company Number: 10482

PATIENT
  Age: 3 Year
  Sex: Male

DRUGS (5)
  1. METHOTREXATE [Suspect]
     Indication: BURKITT'S LYMPHOMA
     Dosage: 15 MG PER_CYCLE
     Route: 037
  2. VINCRISTINE [Suspect]
     Indication: BURKITT'S LYMPHOMA
     Dosage: 1 MG/M2 PER_CYCLE
     Route: 042
  3. CYCLOPHOSPHAMIDE [Suspect]
     Indication: BURKITT'S LYMPHOMA
     Dosage: 300 MG/M2 PER_CYCLE
     Route: 042
  4. PREDNISONE [Suspect]
     Indication: BURKITT'S LYMPHOMA
     Dosage: 300 MG/M2 BID
     Route: 048
  5. HYDROCORTISONE [Suspect]
     Indication: BURKITT'S LYMPHOMA
     Dosage: 15 MG PER_CYCLE
     Route: 037

REACTIONS (4)
  - DRUG TOXICITY [None]
  - OLIGURIA [None]
  - RESPIRATORY ARREST [None]
  - TUMOUR LYSIS SYNDROME [None]
